FAERS Safety Report 14545826 (Version 1)
Quarter: 2018Q1

REPORT INFORMATION
  Report Type: Report from Study
  Country: FR (occurrence: FR)
  Receive Date: 20180219
  Receipt Date: 20180219
  Transmission Date: 20180509
  Serious: Yes (Other)
  Sender: FDA-Public Use
  Company Number: FR-ROCHE-2070198

PATIENT

DRUGS (2)
  1. VISMODEGIB. [Suspect]
     Active Substance: VISMODEGIB
     Indication: CHRONIC LYMPHOCYTIC LEUKAEMIA
  2. VISMODEGIB. [Suspect]
     Active Substance: VISMODEGIB
     Indication: NON-HODGKIN^S LYMPHOMA
     Route: 048

REACTIONS (3)
  - Diarrhoea [Unknown]
  - Vomiting [Unknown]
  - Rash [Unknown]
